FAERS Safety Report 5071755-0 (Version None)
Quarter: 2006Q3

REPORT INFORMATION
  Report Type: 
  Country: None (occurrence: None)
  Receive Date: 20060801
  Receipt Date: 20060725
  Transmission Date: 20061208
  Serious: Yes (Hospitalization)
  Sender: FDA-Public Use
  Company Number: FR_051007323

PATIENT
  Age: 28 Year
  Sex: Female

DRUGS (2)
  1. ZYPREXA [Suspect]
     Indication: BORDERLINE PERSONALITY DISORDER
     Dosage: 5 MG, DAILY (1/D), ORAL
     Route: 048
     Dates: start: 20050629
  2. LOVENOX [Concomitant]

REACTIONS (5)
  - CAESAREAN SECTION [None]
  - DRUG EXPOSURE DURING PREGNANCY [None]
  - GANGRENE [None]
  - POSTPARTUM HAEMORRHAGE [None]
  - TOE AMPUTATION [None]
